FAERS Safety Report 15373439 (Version 3)
Quarter: 2019Q2

REPORT INFORMATION
  Report Type: Spontaneous
  Country: US (occurrence: US)
  Receive Date: 20180912
  Receipt Date: 20190402
  Transmission Date: 20190711
  Serious: No
  Sender: FDA-Public Use
  Company Number: US-MERZ NORTH AMERICA, INC.-18MRZ-00469

PATIENT
  Sex: Female
  Weight: 50.85 kg

DRUGS (2)
  1. XEOMIN [Suspect]
     Active Substance: INCOBOTULINUMTOXINA
     Dosage: 200-300 UNITS
     Dates: start: 201903, end: 201903
  2. XEOMIN [Suspect]
     Active Substance: INCOBOTULINUMTOXINA
     Indication: HEMIPLEGIA
     Dosage: 385 UNITS
     Route: 030
     Dates: start: 20180904, end: 20180904

REACTIONS (2)
  - Nausea [Unknown]
  - Vomiting [Unknown]
